FAERS Safety Report 13582599 (Version 2)
Quarter: 2017Q2

REPORT INFORMATION
  Report Type: Report from Study
  Country: CA (occurrence: CA)
  Receive Date: 20170525
  Receipt Date: 20170606
  Transmission Date: 20170830
  Serious: Yes (Other)
  Sender: FDA-Public Use
  Company Number: CA-JNJFOC-20170302948

PATIENT
  Age: 49 Year
  Sex: Female
  Weight: 72.57 kg

DRUGS (10)
  1. ZOPICLONE [Concomitant]
     Active Substance: ZOPICLONE
     Indication: INSOMNIA
     Dosage: 7.5 TO 15 MG AT BEDTIME
     Route: 048
  2. REMICADE [Suspect]
     Active Substance: INFLIXIMAB
     Indication: CROHN^S DISEASE
     Route: 042
     Dates: start: 20150318
  3. LORAZEPAM. [Concomitant]
     Active Substance: LORAZEPAM
     Route: 048
  4. REMICADE [Suspect]
     Active Substance: INFLIXIMAB
     Indication: CROHN^S DISEASE
     Route: 042
     Dates: start: 20170307
  5. ZOPICLONE [Concomitant]
     Active Substance: ZOPICLONE
     Indication: INSOMNIA
     Route: 048
  6. VENLAFAXINE [Concomitant]
     Active Substance: VENLAFAXINE HYDROCHLORIDE
     Dosage: AT BEDTIME
     Route: 048
  7. REMICADE [Suspect]
     Active Substance: INFLIXIMAB
     Indication: CROHN^S DISEASE
     Dosage: 5 MG/KG
     Route: 042
     Dates: start: 20130425
  8. RABEPRAZOLE [Concomitant]
     Active Substance: RABEPRAZOLE
     Route: 048
  9. PREGABALIN. [Concomitant]
     Active Substance: PREGABALIN
     Indication: PAIN
     Route: 048
  10. REMICADE [Suspect]
     Active Substance: INFLIXIMAB
     Indication: CROHN^S DISEASE
     Route: 042
     Dates: start: 20131015

REACTIONS (18)
  - Abdominal pain [Unknown]
  - Faecal volume increased [Not Recovered/Not Resolved]
  - Back pain [Not Recovered/Not Resolved]
  - Rectal discharge [Not Recovered/Not Resolved]
  - Drug ineffective [Unknown]
  - Dizziness [Not Recovered/Not Resolved]
  - Product use issue [Unknown]
  - Nausea [Not Recovered/Not Resolved]
  - Pain of skin [Not Recovered/Not Resolved]
  - Scab [Not Recovered/Not Resolved]
  - Herpes zoster [Not Recovered/Not Resolved]
  - Abdominal pain upper [Not Recovered/Not Resolved]
  - Off label use [Unknown]
  - Fistula [Not Recovered/Not Resolved]
  - Weight decreased [Not Recovered/Not Resolved]
  - Skin mass [Not Recovered/Not Resolved]
  - Feeding disorder [Unknown]
  - Dry skin [Not Recovered/Not Resolved]

NARRATIVE: CASE EVENT DATE: 20130425
